FAERS Safety Report 14497560 (Version 1)
Quarter: 2018Q1

REPORT INFORMATION
  Report Type: Spontaneous
  Country: GB (occurrence: GB)
  Receive Date: 20180207
  Receipt Date: 20180207
  Transmission Date: 20180509
  Serious: Yes (Hospitalization, Other)
  Sender: FDA-Public Use
  Company Number: GB-PFIZER INC-2018051271

PATIENT

DRUGS (1)
  1. IBRANCE [Suspect]
     Active Substance: PALBOCICLIB
     Dosage: 125 MG, CYCLE 1 AND 3

REACTIONS (5)
  - Herpes zoster [Recovered/Resolved]
  - Neutropenia [Recovered/Resolved]
  - Ear pain [Recovered/Resolved]
  - Lymphopenia [Recovered/Resolved]
  - Pain of skin [Recovered/Resolved]
